FAERS Safety Report 9377894 (Version 1)
Quarter: 2013Q3

REPORT INFORMATION
  Report Type: Spontaneous
  Country: IL (occurrence: IL)
  Receive Date: 20130701
  Receipt Date: 20130701
  Transmission Date: 20140515
  Serious: Yes (Life-Threatening, Hospitalization, Congenital Anomaly)
  Sender: FDA-Public Use
  Company Number: IL-ROXANE LABORATORIES, INC.-2013-RO-01056RO

PATIENT
  Sex: Male
  Weight: 3 kg

DRUGS (2)
  1. OXCARBAZEPINE [Suspect]
     Indication: FOETAL EXPOSURE DURING PREGNANCY
     Dosage: 1400 MG
     Route: 064
  2. FUROSEMIDE [Concomitant]
     Indication: DIURETIC THERAPY

REACTIONS (11)
  - Neonatal respiratory distress syndrome [Recovered/Resolved]
  - Withdrawal syndrome [Recovered/Resolved]
  - Aortic stenosis [Recovered/Resolved]
  - Bicuspid aortic valve [Recovered/Resolved]
  - Atrial septal defect [Recovered/Resolved]
  - Patent ductus arteriosus [Recovered/Resolved]
  - Hydronephrosis [Recovered/Resolved]
  - Renal dysplasia [Recovered/Resolved]
  - Hyponatraemia [Recovered/Resolved]
  - Thrombocytopenia [Recovered/Resolved]
  - Ureteric stenosis [Recovered/Resolved]
